FAERS Safety Report 4432397-0 (Version None)
Quarter: 2004Q3

REPORT INFORMATION
  Report Type: 
  Country: None (occurrence: None)
  Receive Date: 20040825
  Receipt Date: 20040802
  Transmission Date: 20050211
  Serious: Yes (Other)
  Sender: FDA-Public Use
  Company Number: ZA-GLAXOSMITHKLINE-B0341359A

PATIENT
  Age: 22 Year
  Sex: Male
  Weight: 70 kg

DRUGS (2)
  1. ZYBAN [Suspect]
     Dosage: 150MG TWICE PER DAY
     Dates: start: 20040712, end: 20040721
  2. NO CONCURRENT MEDICATIONS [Concomitant]

REACTIONS (6)
  - DELIRIUM [None]
  - DIZZINESS [None]
  - EPILEPSY [None]
  - FOAMING AT MOUTH [None]
  - GRAND MAL CONVULSION [None]
  - INSOMNIA [None]
